FAERS Safety Report 9898428 (Version 4)
Quarter: 2014Q2

REPORT INFORMATION
  Report Type: Spontaneous
  Country: US (occurrence: US)
  Receive Date: 20140214
  Receipt Date: 20140401
  Transmission Date: 20141212
  Serious: Yes (Hospitalization, Other)
  Sender: FDA-Public Use
  Company Number: US-PFIZER INC-2014038795

PATIENT
  Age: 53 Year
  Sex: Female
  Weight: 106.6 kg

DRUGS (4)
  1. GLUCOTROL XL [Suspect]
     Indication: DIABETES MELLITUS
     Dosage: UNK
  2. GLUCOTROL XL [Suspect]
     Dosage: 5 MG, 2X/DAY
  3. LISINOPRIL [Concomitant]
     Indication: HYPERTENSION
     Dosage: 10 MG, 1X/DAY
  4. XANAX [Concomitant]
     Indication: DEPRESSION
     Dosage: 0.25 MG, 3X/DAY

REACTIONS (4)
  - Femur fracture [Unknown]
  - Hip fracture [Unknown]
  - Pelvic fracture [Unknown]
  - Fall [Not Recovered/Not Resolved]
